FAERS Safety Report 13226248 (Version 9)
Quarter: 2017Q2

REPORT INFORMATION
  Report Type: Spontaneous
  Country: US (occurrence: US)
  Receive Date: 20170213
  Receipt Date: 20170606
  Transmission Date: 20170830
  Serious: No
  Sender: FDA-Public Use
  Company Number: US-PFIZER INC-2017057542

PATIENT
  Age: 64 Year
  Sex: Female
  Weight: 79.32 kg

DRUGS (3)
  1. IBRANCE [Suspect]
     Active Substance: PALBOCICLIB
     Dosage: 125 MG, CYCLIC (D1-21-Q28 D)
     Route: 048
     Dates: start: 20170126, end: 201702
  2. IBRANCE [Suspect]
     Active Substance: PALBOCICLIB
     Indication: BREAST CANCER METASTATIC
     Dosage: 125 MG, CYCLIC (1D-21D Q 28 D)
     Route: 048
     Dates: start: 20170126
  3. LETROZOLE. [Concomitant]
     Active Substance: LETROZOLE
     Dosage: UNK

REACTIONS (12)
  - Blood glucose increased [Unknown]
  - White blood cell count decreased [Unknown]
  - Insomnia [Unknown]
  - Fatigue [Unknown]
  - Skin exfoliation [Not Recovered/Not Resolved]
  - Rash generalised [Not Recovered/Not Resolved]
  - Rash pruritic [Recovered/Resolved]
  - Rash erythematous [Recovered/Resolved]
  - Dry skin [Unknown]
  - Skin haemorrhage [Unknown]
  - Diarrhoea [Unknown]
  - Contusion [Unknown]

NARRATIVE: CASE EVENT DATE: 20170209
